FAERS Safety Report 24880077 (Version 2)
Quarter: 2025Q3

REPORT INFORMATION
  Report Type: Spontaneous
  Country: US (occurrence: US)
  Receive Date: 20250123
  Receipt Date: 20250810
  Transmission Date: 20251020
  Serious: No
  Sender: ALEXION PHARMACEUTICALS
  Company Number: US-AstraZeneca-CH-00791052A

PATIENT
  Sex: Male
  Weight: 71.213 kg

DRUGS (1)
  1. TAGRISSO [Suspect]
     Active Substance: OSIMERTINIB
     Indication: Lung cancer metastatic
     Dates: start: 20241008

REACTIONS (2)
  - Blepharospasm [Not Recovered/Not Resolved]
  - Adverse event [Unknown]
